FAERS Safety Report 16658308 (Version 1)
Quarter: 2019Q3

REPORT INFORMATION
  Report Type: Spontaneous
  Country: US (occurrence: US)
  Receive Date: 20190801
  Receipt Date: 20190801
  Transmission Date: 20191004
  Serious: Yes (Hospitalization, Other)
  Sender: FDA-Public Use
  Company Number: None

PATIENT
  Age: 39 Year
  Sex: Female
  Weight: 100.5 kg

DRUGS (9)
  1. HUMIRA [Suspect]
     Active Substance: ADALIMUMAB
     Indication: PSORIATIC ARTHROPATHY
     Dosage: ?          OTHER FREQUENCY:ONCE EVERY 14 DAYS;?
     Route: 058
  2. SPIRIVA 18MCG [Concomitant]
  3. QVAR [Concomitant]
     Active Substance: BECLOMETHASONE DIPROPIONATE
  4. FLUOXETINE [Concomitant]
     Active Substance: FLUOXETINE HYDROCHLORIDE
  5. PROPRANOLOL 20MG [Concomitant]
     Active Substance: PROPRANOLOL HYDROCHLORIDE
  6. VALACYCLOVIR 1GRAM [Concomitant]
  7. OMEPRAZOLE 20MG [Concomitant]
     Active Substance: OMEPRAZOLE
  8. ABILIFY 20MG [Concomitant]
  9. BUPROPION 150MG XL [Concomitant]

REACTIONS (2)
  - Tooth infection [None]
  - Cellulitis [None]

NARRATIVE: CASE EVENT DATE: 20190717
